FAERS Safety Report 18411708 (Version 5)
Quarter: 2022Q1

REPORT INFORMATION
  Report Type: Report from Study
  Country: EG (occurrence: EG)
  Receive Date: 20201021
  Receipt Date: 20220217
  Transmission Date: 20220423
  Serious: Yes (Life-Threatening)
  Sender: FDA-Public Use
  Company Number: EG-NOVOPROD-760785

PATIENT
  Age: 74 Year
  Sex: Female
  Weight: 85 kg

DRUGS (4)
  1. METFORMIN\VILDAGLIPTIN [Concomitant]
     Active Substance: METFORMIN\VILDAGLIPTIN
     Indication: Diabetes mellitus
     Dosage: (1-0-1) START DATE : 5 YEARS
     Route: 048
  2. EXFORGE [Concomitant]
     Active Substance: AMLODIPINE BESYLATE\VALSARTAN
     Indication: Hypertension
     Dosage: UNK (1 MORNING) 10 YEARS AGO
     Route: 048
  3. LIPITOR [Concomitant]
     Active Substance: ATORVASTATIN CALCIUM
     Indication: Blood cholesterol increased
     Dosage: 1 AT NIGHT (10 YEARS AGO)
     Route: 048
  4. TRESIBA [Suspect]
     Active Substance: INSULIN DEGLUDEC
     Indication: Diabetes mellitus
     Dosage: 15 IU, QD (MORNING)
     Route: 058

REACTIONS (3)
  - Hypoglycaemia [Not Recovered/Not Resolved]
  - Incorrect dose administered by device [Unknown]
  - Device breakage [Unknown]

NARRATIVE: CASE EVENT DATE: 20201008
